FAERS Safety Report 4908089-8 (Version None)
Quarter: 2006Q1

REPORT INFORMATION
  Report Type: 
  Country: None (occurrence: None)
  Receive Date: 20060210
  Receipt Date: 20060123
  Transmission Date: 20060701
  Serious: Yes (Hospitalization)
  Sender: FDA-Public Use
  Company Number: 2006AP00421

PATIENT
  Age: 30181 Day
  Sex: Male

DRUGS (8)
  1. TENORMIN [Suspect]
     Indication: HYPERTENSION
     Route: 048
     Dates: start: 20060101, end: 20060121
  2. LASIX [Concomitant]
     Indication: HYPERTENSION
     Route: 042
     Dates: end: 20060121
  3. LASIX [Concomitant]
     Indication: OEDEMA
     Route: 042
     Dates: end: 20060121
  4. FLUITRAN [Concomitant]
     Indication: HYPERTENSION
     Route: 048
     Dates: end: 20060121
  5. FLUITRAN [Concomitant]
     Indication: OEDEMA
     Route: 048
     Dates: end: 20060121
  6. NORVASC [Concomitant]
     Route: 048
     Dates: start: 20051220
  7. NORVASC [Concomitant]
     Route: 048
     Dates: start: 20051220
  8. CARDENALIN [Concomitant]
     Route: 048
     Dates: end: 20060121

REACTIONS (6)
  - BLOOD PRESSURE INADEQUATELY CONTROLLED [None]
  - BLOOD UREA INCREASED [None]
  - BRADYCARDIA [None]
  - CARDIOMEGALY [None]
  - DIALYSIS [None]
  - PNEUMONIA [None]
